FAERS Safety Report 10298017 (Version 1)
Quarter: 2014Q3

REPORT INFORMATION
  Report Type: Spontaneous
  Country: US (occurrence: US)
  Receive Date: 20140711
  Receipt Date: 20140711
  Transmission Date: 20150326
  Serious: No
  Sender: FDA-Public Use
  Company Number: US-GLAXOSMITHKLINE-A1028913A

PATIENT
  Sex: Female

DRUGS (1)
  1. FLOVENT [Suspect]
     Active Substance: FLUTICASONE PROPIONATE
     Indication: LARYNGEAL OEDEMA
     Dosage: 1PUFF PER DAY
     Route: 055
     Dates: start: 20130615, end: 20130625

REACTIONS (3)
  - Adverse drug reaction [Unknown]
  - Migraine [Unknown]
  - Asthma [Unknown]

NARRATIVE: CASE EVENT DATE: 20130615
